FAERS Safety Report 9085073 (Version 1)
Quarter: 2013Q1

REPORT INFORMATION
  Report Type: Report from Study
  Country: US (occurrence: US)
  Receive Date: 20130131
  Receipt Date: 20130131
  Transmission Date: 20140127
  Serious: No
  Sender: FDA-Public Use
  Company Number: US-ABBOTT-12P-163-1004786-00

PATIENT
  Age: 37 Year
  Sex: Male

DRUGS (8)
  1. HUMIRA [Suspect]
     Indication: CROHN^S DISEASE
     Dates: start: 20121012
  2. FLAGYL [Concomitant]
     Indication: ANAL INFECTION
     Dosage: TIMES 3+ WEEKS
  3. FISH OIL [Concomitant]
     Indication: VITAMIN SUPPLEMENTATION
  4. FISH OIL [Concomitant]
     Indication: ANAEMIA
  5. VIT D [Concomitant]
     Indication: VITAMIN SUPPLEMENTATION
  6. VIT D [Concomitant]
     Indication: ANAEMIA
  7. IRON [Concomitant]
     Indication: VITAMIN SUPPLEMENTATION
     Dosage: DAILY
  8. IRON [Concomitant]
     Indication: ANAEMIA

REACTIONS (2)
  - Exposure to toxic agent [Not Recovered/Not Resolved]
  - Anal infection [Not Recovered/Not Resolved]
